FAERS Safety Report 13964307 (Version 1)
Quarter: 2017Q3

REPORT INFORMATION
  Report Type: Spontaneous
  Country: US (occurrence: US)
  Receive Date: 20170913
  Receipt Date: 20170913
  Transmission Date: 20171128
  Serious: Yes (Life-Threatening, Other)
  Sender: FDA-Public Use
  Company Number: None

PATIENT
  Age: 41 Year
  Sex: Female
  Weight: 54 kg

DRUGS (1)
  1. TIOCONAZOLE 1 [Suspect]
     Active Substance: TIOCONAZOLE
     Indication: FUNGAL INFECTION
     Dosage: 1 SUPPOSITORY(IES); DAILY VAGINAL?
     Route: 067
     Dates: start: 20170909, end: 20170909

REACTIONS (7)
  - Pain [None]
  - Second degree chemical burn of skin [None]
  - Shock [None]
  - Blister [None]
  - Chemical burn of skin [None]
  - Application site pain [None]
  - Skin exfoliation [None]

NARRATIVE: CASE EVENT DATE: 20170909
